FAERS Safety Report 8108356-3 (Version None)
Quarter: 2012Q1

REPORT INFORMATION
  Report Type: 
  Country: None (occurrence: None)
  Receive Date: 20120202
  Receipt Date: 20120125
  Transmission Date: 20120608
  Serious: Yes (Hospitalization, Disabling, Other)
  Sender: FDA-Public Use
  Company Number: PHHY2011CA108916

PATIENT
  Sex: Male

DRUGS (2)
  1. AMANTADINE HCL [Concomitant]
     Dosage: UNK UKN, UNK
     Dates: end: 20120114
  2. GILENYA [Suspect]
     Indication: RELAPSING-REMITTING MULTIPLE SCLEROSIS
     Dosage: 0.5 MG, DAILY
     Route: 048
     Dates: start: 20111208, end: 20111231

REACTIONS (13)
  - HALLUCINATION [None]
  - OROPHARYNGEAL PAIN [None]
  - MULTIPLE SCLEROSIS RELAPSE [None]
  - ATAXIA [None]
  - COORDINATION ABNORMAL [None]
  - INFLUENZA LIKE ILLNESS [None]
  - DYSPHAGIA [None]
  - BALANCE DISORDER [None]
  - NERVOUSNESS [None]
  - TREMOR [None]
  - MUSCULAR WEAKNESS [None]
  - SPEECH DISORDER [None]
  - CONVULSION [None]
